FAERS Safety Report 25469899 (Version 1)
Quarter: 2025Q2

REPORT INFORMATION
  Report Type: Spontaneous
  Country: US (occurrence: US)
  Receive Date: 20250623
  Receipt Date: 20250623
  Transmission Date: 20250717
  Serious: No
  Sender: KRAMER LABORATORIES
  Company Number: US-KRAMERLABS-2024-US-054295

PATIENT
  Age: 72 Year
  Sex: Male
  Weight: 101.61 kg

DRUGS (1)
  1. NIZORAL A-D [Suspect]
     Active Substance: KETOCONAZOLE
     Indication: Dandruff
     Route: 061
     Dates: start: 20240807

REACTIONS (1)
  - Trichorrhexis [Unknown]

NARRATIVE: CASE EVENT DATE: 20241006
